FAERS Safety Report 6339432-3 (Version None)
Quarter: 2009Q3

REPORT INFORMATION
  Report Type: 
  Country: None (occurrence: None)
  Receive Date: 20090903
  Receipt Date: 20090827
  Transmission Date: 20100115
  Serious: Yes (Hospitalization)
  Sender: FDA-Public Use
  Company Number: US-ELI_LILLY_AND_COMPANY-US200908006223

PATIENT
  Sex: Female

DRUGS (1)
  1. GLUCAGON [Suspect]
     Dates: start: 19910101

REACTIONS (5)
  - BLOOD GLUCOSE DECREASED [None]
  - DRUG INEFFECTIVE [None]
  - FEELING ABNORMAL [None]
  - HYPOGLYCAEMIC COMA [None]
  - INCOHERENT [None]
